FAERS Safety Report 12299227 (Version 1)
Quarter: 2016Q2

REPORT INFORMATION
  Report Type: Spontaneous
  Country: US (occurrence: None)
  Receive Date: 20160422
  Receipt Date: 20160422
  Transmission Date: 20160815
  Serious: No
  Sender: FDA-Public Use
  Company Number: None

PATIENT
  Age: 58 Year
  Sex: Female
  Weight: 106.14 kg

DRUGS (1)
  1. TRULICITY [Suspect]
     Active Substance: DULAGLUTIDE
     Indication: TYPE 2 DIABETES MELLITUS
     Route: 058
     Dates: start: 20160202, end: 20160412

REACTIONS (9)
  - Feeling abnormal [None]
  - Vomiting [None]
  - Nausea [None]
  - Gastric pH decreased [None]
  - Influenza [None]
  - Impaired gastric emptying [None]
  - Abdominal distension [None]
  - Malaise [None]
  - Eructation [None]

NARRATIVE: CASE EVENT DATE: 20160412
